FAERS Safety Report 4968259-X (Version None)
Quarter: 2006Q2

REPORT INFORMATION
  Report Type: 
  Country: None (occurrence: None)
  Receive Date: 20060405
  Receipt Date: 20060327
  Transmission Date: 20061013
  Serious: Yes (Hospitalization)
  Sender: FDA-Public Use
  Company Number: 2006042166

PATIENT
  Age: 65 Year
  Sex: Male

DRUGS (1)
  1. LIPITOR (ATORVASTATIN) [Suspect]
     Indication: ILL-DEFINED DISORDER
     Dosage: (DAILY)

REACTIONS (1)
  - DIABETIC COMA [None]
